FAERS Safety Report 4394352-9 (Version None)
Quarter: 2004Q3

REPORT INFORMATION
  Report Type: 
  Country: None (occurrence: None)
  Receive Date: 20040707
  Receipt Date: 20040628
  Transmission Date: 20050211
  Serious: Yes (Death)
  Sender: FDA-Public Use
  Company Number: US-JNJFOC-20040100791

PATIENT
  Age: 75 Year
  Sex: Female
  Weight: 72.5755 kg

DRUGS (3)
  1. REOPRO [Suspect]
     Indication: CEREBROVASCULAR ACCIDENT
     Dosage: SEE IMAGE
     Route: 042
     Dates: start: 20030505, end: 20030505
  2. REOPRO [Suspect]
     Indication: CEREBROVASCULAR ACCIDENT
     Dosage: SEE IMAGE
     Route: 042
     Dates: start: 20030505, end: 20030505
  3. TPA (TPE) [Concomitant]

REACTIONS (8)
  - ANGIOGRAM CEREBRAL ABNORMAL [None]
  - BLINDNESS TRANSIENT [None]
  - CAROTID ARTERY STENOSIS [None]
  - CEREBRAL ARTERY THROMBOSIS [None]
  - CEREBRAL HAEMORRHAGE [None]
  - CEREBROVASCULAR DISORDER [None]
  - EMBOLISM [None]
  - HAEMORRHAGE INTRACRANIAL [None]
